FAERS Safety Report 4626599-8 (Version None)
Quarter: 2005Q1

REPORT INFORMATION
  Report Type: 
  Country: None (occurrence: None)
  Receive Date: 20050330
  Receipt Date: 20050309
  Transmission Date: 20050727
  Serious: Yes (Hospitalization)
  Sender: FDA-Public Use
  Company Number: USA050392887

PATIENT
  Age: 45 Year
  Sex: Male

DRUGS (3)
  1. ZYPREXA [Suspect]
     Dosage: 40 MG
     Dates: start: 19970101
  2. ABILIFY [Concomitant]
  3. ZOLOFT [Concomitant]

REACTIONS (3)
  - DIZZINESS POSTURAL [None]
  - INSOMNIA [None]
  - NAUSEA [None]
